FAERS Safety Report 5404967-4 (Version None)
Quarter: 2007Q3

REPORT INFORMATION
  Report Type: 
  Country: None (occurrence: None)
  Receive Date: 20070803
  Receipt Date: 20070726
  Transmission Date: 20080115
  Serious: Yes (Death, Other)
  Sender: FDA-Public Use
  Company Number: FR-AMGEN-UK235049

PATIENT
  Sex: Female
  Weight: 55 kg

DRUGS (10)
  1. NEULASTA [Suspect]
     Indication: CHEMOTHERAPY
     Route: 058
     Dates: start: 20061029, end: 20070121
  2. EMEND [Suspect]
     Route: 048
     Dates: start: 20061116, end: 20070210
  3. ADRIBLASTINE [Concomitant]
     Route: 042
  4. HOLOXAN [Concomitant]
     Route: 042
     Dates: start: 20061025, end: 20070205
  5. ZOFRAN [Concomitant]
  6. SOLU-MEDROL [Concomitant]
  7. PRIMPERAN INJ [Concomitant]
  8. XANAX [Concomitant]
  9. ACETAMINOPHEN [Concomitant]
  10. UNSPECIFIED CONTRACEPTIVE [Concomitant]

REACTIONS (7)
  - CHILLS [None]
  - DRUG INEFFECTIVE [None]
  - MUCOSAL INFLAMMATION [None]
  - ORAL INFECTION [None]
  - PALPITATIONS [None]
  - PYREXIA [None]
  - SUDDEN DEATH [None]
